FAERS Safety Report 10410896 (Version 2)
Quarter: 2014Q3

REPORT INFORMATION
  Report Type: Report from Study
  Country: US (occurrence: US)
  Receive Date: 20140826
  Receipt Date: 20140826
  Transmission Date: 20150326
  Serious: Yes (Other)
  Sender: FDA-Public Use
  Company Number: US-009507513-2011SP004156

PATIENT
  Age: 41 Year
  Sex: Female
  Weight: 78.56 kg

DRUGS (5)
  1. PLACEBO [Suspect]
     Active Substance: UNSPECIFIED INGREDIENT
     Indication: INFERTILITY
     Dosage: 300 IU, QD
     Route: 058
     Dates: start: 20110125, end: 20110127
  2. MINERALS (UNSPECIFIED) (+) VITAMINS (UNSPECIFIED) [Concomitant]
     Indication: NUTRITIONAL SUPPLEMENTATION
     Dosage: PRECONCEPTION AND PREGNANCY HEALTH
     Route: 048
     Dates: start: 2009
  3. PLACEBO [Suspect]
     Active Substance: UNSPECIFIED INGREDIENT
     Dates: start: 20110131
  4. FOLLITROPIN BETA [Suspect]
     Active Substance: FOLLITROPIN
     Indication: INFERTILITY
     Route: 058
  5. STUDY DRUG (UNSPECIFIED) [Concomitant]
     Active Substance: UNSPECIFIED INGREDIENT
     Indication: INFERTILITY
     Dosage: 150 ?G, ONCE
     Route: 058
     Dates: start: 20110125, end: 20110125

REACTIONS (1)
  - Overdose [Not Recovered/Not Resolved]

NARRATIVE: CASE EVENT DATE: 20110126
